FAERS Safety Report 7740200-6 (Version None)
Quarter: 2011Q3

REPORT INFORMATION
  Report Type: 
  Country: None (occurrence: None)
  Receive Date: 20110909
  Receipt Date: 20110909
  Transmission Date: 20111222
  Serious: Yes (Life-Threatening, Other)
  Sender: FDA-Public Use
  Company Number: None

PATIENT
  Age: 55 Year
  Sex: Male
  Weight: 72.574 kg

DRUGS (1)
  1. SERTRALINE HYDROCHLORIDE [Suspect]
     Indication: ANXIETY
     Dosage: 25 MG
     Route: 048
     Dates: start: 20100601, end: 20110820

REACTIONS (5)
  - FATIGUE [None]
  - PALPITATIONS [None]
  - DIZZINESS [None]
  - DYSPNOEA [None]
  - ARRHYTHMIA [None]
